FAERS Safety Report 15249782 (Version 2)
Quarter: 2018Q3

REPORT INFORMATION
  Report Type: Spontaneous
  Country: JP (occurrence: JP)
  Receive Date: 20180807
  Receipt Date: 20180824
  Transmission Date: 20181010
  Serious: Yes (Other)
  Sender: FDA-Public Use
  Company Number: JP-BAYER-2018-142225

PATIENT
  Age: 89 Year
  Sex: Female

DRUGS (1)
  1. BAYASPIRIN 100 MG [Suspect]
     Active Substance: ASPIRIN
     Route: 048

REACTIONS (4)
  - Acquired haemophilia [Not Recovered/Not Resolved]
  - Haemorrhage subcutaneous [None]
  - Eye haemorrhage [None]
  - Anti factor VIII antibody positive [None]
